FAERS Safety Report 8853292 (Version 1)
Quarter: 2012Q4

REPORT INFORMATION
  Report Type: 
  Country: NZ (occurrence: NZ)
  Receive Date: 20121022
  Receipt Date: 20121022
  Transmission Date: 20130627
  Serious: Yes (Other)
  Sender: FDA-Public Use
  Company Number: NZ-PFIZER INC-2012235156

PATIENT
  Age: 57 Year
  Sex: Male

DRUGS (10)
  1. ZARATOR [Suspect]
     Indication: BLOOD CHOLESTEROL
     Dosage: 80 mg, 1x/day
     Route: 048
     Dates: start: 20120831
  2. LANTUS [Concomitant]
     Indication: DIABETES MELLITUS
     Dosage: 60 IU, 1x/day
  3. METOPROLOL [Concomitant]
     Indication: BLOOD PRESSURE
     Dosage: 190 mg, 1x/day
     Route: 048
  4. ASPIRIN [Concomitant]
     Indication: ANTICOAGULANT THERAPY
     Dosage: 100 mg, 1x/day
     Route: 048
  5. METFORMIN [Concomitant]
     Indication: DIABETES MELLITUS
     Dosage: 1 g, 3x/day
     Route: 048
  6. DILTIAZEM [Concomitant]
     Indication: BLOOD PRESSURE
     Dosage: 360 mg, 1x/day
     Route: 048
  7. DILTIAZEM [Concomitant]
     Indication: CARDIAC DISORDER
  8. CLOPIDOGREL [Concomitant]
     Indication: ANTICOAGULANT THERAPY
     Dosage: 75 mg, 1x/day
     Route: 048
  9. DOXAZOSIN [Concomitant]
     Indication: BLOOD PRESSURE
     Dosage: 4 mg, 1x/day at night
     Route: 048
  10. LOSARTAN POTASSIUM W/HYDROCHLOROTHIAZIDE [Concomitant]
     Indication: BLOOD PRESSURE
     Dosage: 1 DF, 1x/day
     Route: 048

REACTIONS (2)
  - Cough [Not Recovered/Not Resolved]
  - Insomnia [Not Recovered/Not Resolved]
